FAERS Safety Report 9692250 (Version 1)
Quarter: 2013Q4

REPORT INFORMATION
  Report Type: Spontaneous
  Country: CO (occurrence: CO)
  Receive Date: 20131118
  Receipt Date: 20131118
  Transmission Date: 20140711
  Serious: Yes (Other)
  Sender: FDA-Public Use
  Company Number: CO-AMGEN-COLSP2013081016

PATIENT
  Age: 46 Year
  Sex: Male

DRUGS (5)
  1. ENBREL [Suspect]
     Indication: PSORIATIC ARTHROPATHY
     Dosage: 50 MG, TWICE WEEKLY
     Route: 058
     Dates: start: 201310, end: 201310
  2. PREDNISOLONE [Concomitant]
     Indication: PSORIATIC ARTHROPATHY
     Dosage: 5 MG, ONCE DAILY
     Route: 048
     Dates: start: 201309
  3. CALCITRIOL [Concomitant]
     Indication: BONE DISORDER
     Dosage: 5 MG, ONCE DAILY
     Route: 048
     Dates: start: 201309
  4. FOLIC ACID [Concomitant]
     Dosage: 5 MG, ONCE DAILY
     Route: 048
     Dates: start: 201309
  5. EUTIROX [Concomitant]
     Indication: THYROID DISORDER
     Dosage: 125 UG, ONCE DAILY FASTED
     Route: 048
     Dates: start: 201309

REACTIONS (1)
  - Umbilical hernia [Not Recovered/Not Resolved]
